FAERS Safety Report 10057656 (Version 2)
Quarter: 2014Q2

REPORT INFORMATION
  Report Type: Report from Study
  Country: US (occurrence: US)
  Receive Date: 20140404
  Receipt Date: 20140509
  Transmission Date: 20141212
  Serious: No
  Sender: FDA-Public Use
  Company Number: US-BIOGENIDEC-2014BI031503

PATIENT
  Age: 52 Year
  Sex: Female

DRUGS (1)
  1. TYSABRI [Suspect]
     Indication: MULTIPLE SCLEROSIS
     Route: 042
     Dates: start: 20100114, end: 20140102

REACTIONS (3)
  - Drug delivery device implantation [Recovered/Resolved]
  - Incision site pain [Not Recovered/Not Resolved]
  - Gait disturbance [Not Recovered/Not Resolved]
